FAERS Safety Report 21350792 (Version 1)
Quarter: 2022Q3

REPORT INFORMATION
  Report Type: Spontaneous
  Country: US (occurrence: None)
  Receive Date: 20220919
  Receipt Date: 20220919
  Transmission Date: 20221027
  Serious: No
  Sender: FDA-Public Use
  Company Number: None

PATIENT
  Age: 30 Year
  Sex: Female

DRUGS (1)
  1. DOCETAXEL [Suspect]
     Active Substance: DOCETAXEL

REACTIONS (6)
  - Chest discomfort [None]
  - Hyperhidrosis [None]
  - Abdominal discomfort [None]
  - Heart rate increased [None]
  - Blood pressure increased [None]
  - Oxygen saturation decreased [None]
